FAERS Safety Report 4372653-8 (Version None)
Quarter: 2004Q2

REPORT INFORMATION
  Report Type: 
  Country: None (occurrence: None)
  Receive Date: 20040526
  Receipt Date: 20040518
  Transmission Date: 20050107
  Serious: Yes (Other)
  Sender: FDA-Public Use
  Company Number: US-JNJFOC-20040504170

PATIENT
  Age: 62 Year
  Sex: Male

DRUGS (3)
  1. REOPRO [Suspect]
     Dosage: SEE IMAGE
     Route: 042
     Dates: end: 20040518
  2. REOPRO [Suspect]
     Dosage: SEE IMAGE
     Route: 042
     Dates: start: 20040518
  3. HEPARIN [Concomitant]

REACTIONS (1)
  - PYREXIA [None]
